FAERS Safety Report 9117834 (Version 1)
Quarter: 2013Q1

REPORT INFORMATION
  Report Type: Report from Study
  Country: DK (occurrence: DK)
  Receive Date: 20130225
  Receipt Date: 20130225
  Transmission Date: 20140127
  Serious: Yes (Hospitalization)
  Sender: FDA-Public Use
  Company Number: DK-BRISTOL-MYERS SQUIBB COMPANY-16410151

PATIENT
  Age: 71 Year
  Sex: Male

DRUGS (11)
  1. IPILIMUMAB [Suspect]
     Indication: PROSTATE CANCER
     Dosage: 1020 MG TOTAL DOSE
     Route: 042
     Dates: start: 20120201
  2. MOVICOL [Concomitant]
     Dosage: 1 DF=1 POWDER
     Route: 048
     Dates: start: 20110524
  3. IBUPROFEN [Concomitant]
     Dosage: 1200MG:18FEB12-22FEB,1800MG:23FEB12-ONG
     Route: 048
     Dates: start: 20120125, end: 20120217
  4. MORPHINE [Concomitant]
     Dosage: 40MG:01FEB12-06FEB,80MG:07FEB-07FEB,60MG:08FEB-08FEB,40MG:9FEB-13FEB,20MG:14FEB-28FEB
     Route: 048
     Dates: start: 20120131
  5. FERRO DURETTER [Concomitant]
     Route: 048
     Dates: start: 20120113
  6. ACTILAX [Concomitant]
     Dates: start: 20120113
  7. PANTOPRAZOLE [Concomitant]
     Route: 048
     Dates: start: 201012
  8. CITALOPRAM [Concomitant]
     Dates: start: 201012
  9. CENTYL K [Concomitant]
     Route: 048
     Dates: start: 2008
  10. GOSERELIN ACETATE [Concomitant]
     Route: 058
     Dates: start: 20070507
  11. PARACETAMOL [Concomitant]
     Dosage: 3000MG:18FEB12-ONGNG
     Route: 048
     Dates: start: 20120125, end: 20120217

REACTIONS (4)
  - Diarrhoea [Recovered/Resolved]
  - Dehydration [Recovered/Resolved]
  - Febrile neutropenia [Recovered/Resolved]
  - Haemoglobin decreased [Recovered/Resolved]
